FAERS Safety Report 4433965-2 (Version None)
Quarter: 2004Q3

REPORT INFORMATION
  Report Type: 
  Country: None (occurrence: None)
  Receive Date: 20040824
  Receipt Date: 20040824
  Transmission Date: 20050211
  Serious: Yes (Life-Threatening, Hospitalization, Disabling)
  Sender: FDA-Public Use
  Company Number: None

PATIENT
  Age: 47 Year
  Sex: Male
  Weight: 85.7298 kg

DRUGS (3)
  1. ZITHROMAX [Suspect]
     Indication: UPPER RESPIRATORY TRACT INFECTION
     Dosage: 2X 1ST DAY 1 X 4 DAYS
     Dates: start: 20031220
  2. ZITHROMAX [Suspect]
     Indication: UPPER RESPIRATORY TRACT INFECTION
     Dosage: 2X 1ST DAY 1 X 4 DAYS
     Dates: start: 20031221
  3. ZITHROMAX [Suspect]
     Indication: UPPER RESPIRATORY TRACT INFECTION
     Dosage: 2X 1ST DAY 1 X 4 DAYS
     Dates: start: 20031222

REACTIONS (5)
  - CHROMATURIA [None]
  - FEELING COLD [None]
  - MALAISE [None]
  - PYREXIA [None]
  - TREMOR [None]
